FAERS Safety Report 5345986-6 (Version None)
Quarter: 2007Q2

REPORT INFORMATION
  Report Type: 
  Country: None (occurrence: None)
  Receive Date: 20070430
  Receipt Date: 20070308
  Transmission Date: 20071010
  Serious: No
  Sender: FDA-Public Use
  Company Number: 261634

PATIENT
  Age: 55 Year
  Sex: Male

DRUGS (1)
  1. LEVEMIR [Suspect]
     Indication: INSULIN-REQUIRING TYPE II DIABETES MELLITUS
     Dosage: 70 U, BID, SUBCUTANEOUS
     Route: 058
     Dates: start: 20060721, end: 20060831

REACTIONS (1)
  - RASH GENERALISED [None]
